FAERS Safety Report 8591887-X (Version None)
Quarter: 2012Q3

REPORT INFORMATION
  Report Type: 
  Country: None (occurrence: None)
  Receive Date: 20120814
  Receipt Date: 20120813
  Transmission Date: 20120928
  Serious: Yes (Death, Hospitalization)
  Sender: FDA-Public Use
  Company Number: PHHY2012BR060542

PATIENT
  Sex: Male
  Weight: 65 kg

DRUGS (6)
  1. EXELON [Suspect]
     Indication: DEMENTIA ALZHEIMER'S TYPE
     Dosage: 1 DF (1.5 MG), A DAY
     Route: 048
     Dates: start: 20040101
  2. EXELON [Suspect]
     Dosage: 1 DF (4.5 MG), A DAY
     Route: 048
  3. EXELON [Suspect]
     Indication: DEMENTIA ALZHEIMER'S TYPE
     Dosage: 9.5 MG DAILY (18 MG / 10 CM2)
     Route: 062
     Dates: start: 20080101
  4. EXELON [Suspect]
     Dosage: 1 DF (6 MG), A DAY
     Route: 048
  5. EXELON [Suspect]
     Dosage: 1 DF (3 MG), A DAY
     Route: 048
  6. EXELON [Suspect]
     Dosage: 1 DF (6 MG), BID
     Route: 048
     Dates: end: 20080101

REACTIONS (6)
  - CARDIAC FAILURE [None]
  - CARDIO-RESPIRATORY ARREST [None]
  - GENERAL PHYSICAL HEALTH DETERIORATION [None]
  - DYSGRAPHIA [None]
  - HYPOKINESIA [None]
  - DYSPHAGIA [None]
